FAERS Safety Report 8310362-0 (Version None)
Quarter: 2012Q2

REPORT INFORMATION
  Report Type: 
  Country: None (occurrence: None)
  Receive Date: 20120425
  Receipt Date: 20120417
  Transmission Date: 20120825
  Serious: Yes (Other)
  Sender: FDA-Public Use
  Company Number: US-BAYER-2012-037647

PATIENT

DRUGS (2)
  1. ALEVE (CAPLET) [Suspect]
     Route: 048
  2. EXCEDRIN EXTRA STRENGTH TABLETS [Suspect]

REACTIONS (2)
  - DRUG INEFFECTIVE [None]
  - ANXIETY [None]
